FAERS Safety Report 26073967 (Version 1)
Quarter: 2025Q4

REPORT INFORMATION
  Report Type: Spontaneous
  Country: US (occurrence: US)
  Receive Date: 20251121
  Receipt Date: 20251121
  Transmission Date: 20260117
  Serious: No
  Sender: RECKITT BENCKISER
  Company Number: US-PROD-AS2-212756134-20-25-USA-RB-0014034

PATIENT
  Age: 72 Year
  Sex: Female

DRUGS (1)
  1. DELSYM [Suspect]
     Active Substance: DEXTROMETHORPHAN
     Indication: Cough
     Dosage: 20.000ML
     Route: 065
     Dates: start: 20250711

REACTIONS (1)
  - Gastrointestinal disorder [Not Recovered/Not Resolved]

NARRATIVE: CASE EVENT DATE: 20250711
